FAERS Safety Report 19496224 (Version 1)
Quarter: 2021Q3

REPORT INFORMATION
  Report Type: Spontaneous
  Country: US (occurrence: US)
  Receive Date: 20210702
  Receipt Date: 20210702
  Transmission Date: 20211014
  Serious: Yes (Other)
  Sender: FDA-Public Use
  Company Number: None

PATIENT
  Age: 63 Year
  Sex: Female

DRUGS (1)
  1. ENBREL [Suspect]
     Active Substance: ETANERCEPT
     Indication: RHEUMATOID ARTHRITIS
     Dosage: ?          OTHER FREQUENCY:WEEKLY;?
     Route: 058
     Dates: start: 20210416, end: 20210504

REACTIONS (6)
  - Nasopharyngitis [None]
  - Gingival pain [None]
  - Toothache [None]
  - Gingival erosion [None]
  - Therapy interrupted [None]
  - Constipation [None]

NARRATIVE: CASE EVENT DATE: 20210630
